FAERS Safety Report 17502117 (Version 2)
Quarter: 2020Q1

REPORT INFORMATION
  Report Type: Spontaneous
  Country: US (occurrence: US)
  Receive Date: 20200305
  Receipt Date: 20200309
  Transmission Date: 20200409
  Serious: No
  Sender: FDA-Public Use
  Company Number: US-PFIZER INC-2020097934

PATIENT
  Age: 68 Year
  Sex: Female

DRUGS (1)
  1. HYDROCORTISONE. [Suspect]
     Active Substance: HYDROCORTISONE
     Dosage: 10 MG, ALTERNATE DAY (1 EVERY OTHER DAY)
     Dates: start: 20200303

REACTIONS (2)
  - Diarrhoea [Unknown]
  - Allergic reaction to excipient [Unknown]
